FAERS Safety Report 9934127 (Version 1)
Quarter: 2014Q1

REPORT INFORMATION
  Report Type: Report from Study
  Country: US (occurrence: US)
  Receive Date: 20140228
  Receipt Date: 20140228
  Transmission Date: 20141002
  Serious: No
  Sender: FDA-Public Use
  Company Number: US-ABBVIE-14P-163-1196763-00

PATIENT
  Sex: Male
  Weight: 112.14 kg

DRUGS (3)
  1. ANDROGEL [Suspect]
     Indication: BLOOD TESTOSTERONE DECREASED
     Route: 061
     Dates: start: 201306, end: 201312
  2. TAMSULOSIN [Concomitant]
     Indication: URINARY RETENTION
  3. FINASTERIDE [Concomitant]
     Indication: URINARY RETENTION

REACTIONS (3)
  - Oedema peripheral [Recovered/Resolved]
  - Oedema peripheral [Recovered/Resolved]
  - Blood pressure increased [Recovered/Resolved]
